FAERS Safety Report 24891426 (Version 2)
Quarter: 2025Q1

REPORT INFORMATION
  Report Type: Other
  Country: FR (occurrence: FR)
  Receive Date: 20250127
  Receipt Date: 20250225
  Transmission Date: 20250408
  Serious: Yes (Other)
  Sender: Atnahs Healthcare
  Company Number: None

PATIENT
  Age: 53 Year
  Sex: Female

DRUGS (9)
  1. VALIUM [Suspect]
     Active Substance: DIAZEPAM
     Indication: Chemical submission
  2. CYAMEMAZINE [Suspect]
     Active Substance: CYAMEMAZINE
     Indication: Chemical submission
  3. IMOVANE [Suspect]
     Active Substance: ZOPICLONE
     Indication: Chemical submission
  4. LORAZEPAM [Suspect]
     Active Substance: LORAZEPAM
     Indication: Chemical submission
  5. BROMAZEPAM [Suspect]
     Active Substance: BROMAZEPAM
     Indication: Chemical submission
     Dosage: 3 DOSAGE FORM, 1X/DAY 3 TABLETS IN THE EVENING
     Route: 048
  6. NORDAZEPAM [Suspect]
     Active Substance: NORDAZEPAM
     Indication: Chemical submission
  7. OXAZEPAM [Suspect]
     Active Substance: OXAZEPAM
     Indication: Chemical submission
  8. TRAMADOL [Suspect]
     Active Substance: TRAMADOL
     Indication: Chemical submission
  9. XANAX [Suspect]
     Active Substance: ALPRAZOLAM
     Indication: Chemical submission

REACTIONS (18)
  - Major depression [Recovered/Resolved]
  - Fatigue [Not Recovered/Not Resolved]
  - Drug level increased [Unknown]
  - Malaise [Not Recovered/Not Resolved]
  - Poisoning [Recovered/Resolved]
  - Nausea [Recovered/Resolved]
  - Cholinergic syndrome [Recovered/Resolved]
  - Vomiting [Recovered/Resolved]
  - Weight decreased [Recovered/Resolved]
  - Salivary hypersecretion [Recovered/Resolved]
  - Suicidal ideation [Recovered/Resolved]
  - Exposure during pregnancy [Unknown]
  - Chemical submission [Unknown]
  - Product use in unapproved indication [Unknown]
  - Incorrect product administration duration [Unknown]
  - Wrong rate [Unknown]
  - Maternal exposure timing unspecified [Unknown]
  - Off label use [Unknown]

NARRATIVE: CASE EVENT DATE: 20200101
